FAERS Safety Report 8200078-3 (Version None)
Quarter: 2012Q1

REPORT INFORMATION
  Report Type: 
  Country: None (occurrence: None)
  Receive Date: 20120312
  Receipt Date: 20120306
  Transmission Date: 20120608
  Serious: Yes (Death)
  Sender: FDA-Public Use
  Company Number: BR-SHIRE-SPV1-2011-00980

PATIENT
  Sex: Male

DRUGS (2)
  1. HYDROXYZINE HCL [Concomitant]
     Indication: PREMEDICATION
     Dosage: UNK UNK, AS REQ'D
     Route: 048
     Dates: start: 20080710
  2. IDURSULFASE [Suspect]
     Indication: MUCOPOLYSACCHARIDOSIS II
     Dosage: UNK
     Dates: start: 20080602, end: 20110126

REACTIONS (1)
  - DEATH [None]
